FAERS Safety Report 4832830-6 (Version None)
Quarter: 2005Q4

REPORT INFORMATION
  Report Type: 
  Country: None (occurrence: None)
  Receive Date: 20051121
  Receipt Date: 20050930
  Transmission Date: 20060501
  Serious: Yes (Hospitalization)
  Sender: FDA-Public Use
  Company Number: US-MERCK-0510USA00743

PATIENT
  Age: 46 Year
  Sex: Male
  Weight: 82 kg

DRUGS (4)
  1. VIOXX [Suspect]
     Indication: HEADACHE
     Route: 048
     Dates: start: 20010220, end: 20040902
  2. VIOXX [Suspect]
     Indication: SURGERY
     Route: 048
     Dates: start: 20010220, end: 20040902
  3. DILANTIN [Concomitant]
     Route: 065
  4. NEURONTIN [Concomitant]
     Route: 065

REACTIONS (1)
  - MYOCARDIAL INFARCTION [None]
